FAERS Safety Report 13449204 (Version 1)
Quarter: 2017Q2

REPORT INFORMATION
  Report Type: Spontaneous
  Country: US (occurrence: US)
  Receive Date: 20170417
  Receipt Date: 20170417
  Transmission Date: 20170830
  Serious: No
  Sender: FDA-Public Use
  Company Number: US-BIOGEN-2017BI00386532

PATIENT
  Sex: Female

DRUGS (4)
  1. AVONEX [Suspect]
     Active Substance: INTERFERON BETA-1A
     Dates: start: 20000918
  2. TECFIDERA [Suspect]
     Active Substance: DIMETHYL FUMARATE
     Dates: start: 20170407
  3. TECFIDERA [Suspect]
     Active Substance: DIMETHYL FUMARATE
     Indication: MULTIPLE SCLEROSIS
     Route: 065
     Dates: start: 20170325
  4. AVONEX [Suspect]
     Active Substance: INTERFERON BETA-1A
     Indication: MULTIPLE SCLEROSIS
     Route: 065
     Dates: start: 20000918

REACTIONS (10)
  - Contusion [Unknown]
  - Memory impairment [Unknown]
  - Anxiety [Unknown]
  - Fear [Unknown]
  - Loss of consciousness [Unknown]
  - Increased tendency to bruise [Unknown]
  - Flushing [Unknown]
  - Fall [Unknown]
  - Hypotension [Unknown]
  - Tinnitus [Unknown]
